FAERS Safety Report 9669789 (Version 4)
Quarter: 2014Q2

REPORT INFORMATION
  Report Type: Spontaneous
  Country: IT (occurrence: IT)
  Receive Date: 20131105
  Receipt Date: 20140530
  Transmission Date: 20141212
  Serious: Yes (Life-Threatening, Hospitalization)
  Sender: FDA-Public Use
  Company Number: IT-ABBVIE-12P-083-0974181-00

PATIENT
  Age: 72 Year
  Sex: Male

DRUGS (1)
  1. VALPROIC ACID [Suspect]
     Indication: MENTAL DISORDER
     Dosage: 60 GRAMS, ONCE
     Route: 048

REACTIONS (13)
  - Ventricular tachycardia [Recovered/Resolved]
  - Electrocardiogram QT prolonged [Recovered/Resolved]
  - Hyperammonaemia [Recovered/Resolved]
  - Hypokalaemia [Recovered/Resolved]
  - Platelet disorder [Recovered/Resolved]
  - Nodal rhythm [Recovered/Resolved]
  - Haemodynamic instability [Recovered/Resolved]
  - Hyporeflexia [Unknown]
  - Miosis [Recovered/Resolved]
  - Coma scale abnormal [Recovered/Resolved]
  - Off label use [Unknown]
  - Overdose [Recovered/Resolved]
  - Dehydration [Recovered/Resolved]
